FAERS Safety Report 18604888 (Version 6)
Quarter: 2021Q2

REPORT INFORMATION
  Report Type: Spontaneous
  Country: GB (occurrence: GB)
  Receive Date: 20201211
  Receipt Date: 20210528
  Transmission Date: 20210717
  Serious: Yes (Other)
  Sender: FDA-Public Use
  Company Number: GB-NOVOPROD-771424

PATIENT
  Age: 29 Year
  Sex: Male

DRUGS (3)
  1. ESPEROCT [Suspect]
     Active Substance: ANTIHEMOPHILIC FACTOR, HUMAN RECOMBINANT
     Indication: FACTOR VIII DEFICIENCY
     Dosage: 50IU/KG INFUSION EVERY 4 DAYS
     Route: 042
     Dates: start: 20201124, end: 20201124
  2. NOVOEIGHT [Concomitant]
     Active Substance: ANTIHEMOPHILIC FACTOR, HUMAN RECOMBINANT
     Indication: FACTOR VIII DEFICIENCY
     Dosage: UNK
     Route: 065
     Dates: start: 201805
  3. NOVOEIGHT [Concomitant]
     Active Substance: ANTIHEMOPHILIC FACTOR, HUMAN RECOMBINANT
     Dosage: UNK
     Route: 065
     Dates: start: 20201117

REACTIONS (4)
  - Inhibiting antibodies [Unknown]
  - Haemorrhage [Unknown]
  - Coagulation factor VIII level decreased [Unknown]
  - Hypersensitivity [Unknown]
